FAERS Safety Report 6014059-1 (Version None)
Quarter: 2008Q4

REPORT INFORMATION
  Report Type: 
  Country: None (occurrence: None)
  Receive Date: 20081219
  Receipt Date: 20071115
  Transmission Date: 20090506
  Serious: No
  Sender: FDA-Public Use
  Company Number: A0694759A

PATIENT
  Age: 72 Year
  Sex: Male

DRUGS (4)
  1. AVODART [Suspect]
     Indication: BENIGN PROSTATIC HYPERPLASIA
     Dosage: .5MG PER DAY
     Route: 048
     Dates: start: 20061101
  2. LISINOPRIL [Concomitant]
  3. HYDROCHLOROTHIAZIDE [Concomitant]
  4. FLECAINIDE ACETATE [Concomitant]

REACTIONS (1)
  - BLOOD PRESSURE INCREASED [None]
